FAERS Safety Report 8429095-5 (Version None)
Quarter: 2012Q2

REPORT INFORMATION
  Report Type: 
  Country: None (occurrence: None)
  Receive Date: 20120612
  Receipt Date: 20120601
  Transmission Date: 20120825
  Serious: Yes (Hospitalization, Other)
  Sender: FDA-Public Use
  Company Number: US-JNJFOC-20120601430

PATIENT
  Sex: Female
  Weight: 90.72 kg

DRUGS (1)
  1. DURAGESIC-100 [Suspect]
     Indication: PAIN
     Route: 062
     Dates: start: 20050101

REACTIONS (6)
  - WRONG TECHNIQUE IN DRUG USAGE PROCESS [None]
  - POOR QUALITY DRUG ADMINISTERED [None]
  - SCIATICA [None]
  - STRESS [None]
  - DIABETES MELLITUS [None]
  - PRODUCT QUALITY ISSUE [None]
